FAERS Safety Report 12267241 (Version 1)
Quarter: 2016Q2

REPORT INFORMATION
  Report Type: Spontaneous
  Country: FR (occurrence: FR)
  Receive Date: 20160414
  Receipt Date: 20160414
  Transmission Date: 20160815
  Serious: Yes (Other)
  Sender: FDA-Public Use
  Company Number: PHHY2016FR046677

PATIENT
  Age: 64 Year
  Sex: Female

DRUGS (7)
  1. ZOPHREN [Suspect]
     Active Substance: ONDANSETRON
     Indication: PREMEDICATION
     Dosage: 1 DF, QD
     Route: 042
     Dates: start: 20160209, end: 20160209
  2. PACLITAXEL KABI [Suspect]
     Active Substance: PACLITAXEL
     Indication: OVARIAN CANCER
     Dosage: 120 MG, UNK
     Route: 042
     Dates: start: 20160209, end: 20160209
  3. EMEND [Suspect]
     Active Substance: APREPITANT
     Dosage: 80 MG, 1 DF DAILY
     Route: 042
     Dates: start: 20160209, end: 20160209
  4. CARBOPLATINE KABI [Suspect]
     Active Substance: CARBOPLATIN
     Indication: OVARIAN CANCER
     Dosage: 200 MG, UNK
     Route: 042
     Dates: start: 20160209, end: 20160209
  5. METHYLPREDNISOLONE MERCK [Suspect]
     Active Substance: METHYLPREDNISOLONE
     Indication: PREMEDICATION
     Dosage: 60 MG, QD
     Route: 042
     Dates: start: 20160209, end: 20160209
  6. POLARAMINE [Suspect]
     Active Substance: DEXCHLORPHENIRAMINE MALEATE
     Indication: PREMEDICATION
     Dosage: UNK UNK, QD
     Route: 042
     Dates: start: 20160209, end: 20160209
  7. EMEND [Suspect]
     Active Substance: APREPITANT
     Indication: PREMEDICATION
     Dosage: 125 MG, 1 DF DAILY
     Route: 042
     Dates: start: 20160209, end: 20160209

REACTIONS (5)
  - Blood alkaline phosphatase increased [Recovering/Resolving]
  - Alanine aminotransferase increased [Recovered/Resolved]
  - Aspartate aminotransferase increased [Recovered/Resolved]
  - Eosinophil count increased [Recovered/Resolved]
  - Gamma-glutamyltransferase increased [Recovering/Resolving]

NARRATIVE: CASE EVENT DATE: 20160222
